FAERS Safety Report 8233364 (Version 2)
Quarter: 2013Q3

REPORT INFORMATION
  Report Type: Spontaneous
  Country: US (occurrence: US)
  Receive Date: 20111107
  Receipt Date: 20130806
  Transmission Date: 20140515
  Serious: Yes (Hospitalization)
  Sender: FDA-Public Use
  Company Number: US-US-EMD SERONO, INC.-7092966

PATIENT
  Age: 52 Year
  Sex: Female

DRUGS (3)
  1. REBIF [Suspect]
     Indication: PRODUCT USED FOR UNKNOWN INDICATION
     Dates: start: 20111005
  2. REBIF [Suspect]
     Route: 058
  3. REBIF [Suspect]
     Dates: end: 201112

REACTIONS (4)
  - Blood sodium decreased [Unknown]
  - Convulsion [Unknown]
  - Decreased appetite [Unknown]
  - Pain [Unknown]
